FAERS Safety Report 25934624 (Version 4)
Quarter: 2025Q4

REPORT INFORMATION
  Report Type: Report from Study
  Country: US (occurrence: US)
  Receive Date: 20251017
  Receipt Date: 20251110
  Transmission Date: 20260118
  Serious: Yes (Hospitalization, Other)
  Sender: MALLINCKRODT
  Company Number: US-MALLINCKRODT-MNK202506401

PATIENT
  Age: 16 Month
  Sex: Male
  Weight: 10 kg

DRUGS (1)
  1. CORTICOTROPIN [Suspect]
     Active Substance: CORTICOTROPIN
     Indication: Infantile spasms
     Route: 030
     Dates: start: 20251009

REACTIONS (10)
  - Heart rate irregular [Unknown]
  - Oxygen saturation decreased [Unknown]
  - Hypertension [Recovering/Resolving]
  - Gastrointestinal disorder [Unknown]
  - Somnolence [Not Recovered/Not Resolved]
  - Flatulence [Unknown]
  - Productive cough [Unknown]
  - Abnormal behaviour [Recovered/Resolved]
  - Pain [Unknown]
  - Irritability [Unknown]

NARRATIVE: CASE EVENT DATE: 20251001
